FAERS Safety Report 4732028-6 (Version None)
Quarter: 2005Q3

REPORT INFORMATION
  Report Type: 
  Country: None (occurrence: None)
  Receive Date: 20050802
  Receipt Date: 20050524
  Transmission Date: 20060218
  Serious: Yes (Death)
  Sender: FDA-Public Use
  Company Number: PH-ABBOTT-05P-128-0301681-00

PATIENT
  Age: 2 Month
  Sex: Male

DRUGS (3)
  1. SEVORANE LIQUID FOR INHALATION [Suspect]
     Indication: ANAESTHESIA
     Dosage: NOT REPORTED
     Route: 055
  2. ATROPINE [Concomitant]
     Indication: PREMEDICATION
     Dosage: NOT REPORTED
  3. ATRACURIUM BESYLATE [Concomitant]
     Indication: MUSCLE RELAXANT THERAPY
     Dosage: NOT REPORTED

REACTIONS (1)
  - BRADYCARDIA [None]
